FAERS Safety Report 5298090-X (Version None)
Quarter: 2007Q1

REPORT INFORMATION
  Report Type: 
  Country: None (occurrence: None)
  Receive Date: 20070205
  Receipt Date: 20061120
  Transmission Date: 20070707
  Serious: Yes (Hospitalization, Other)
  Sender: FDA-Public Use
  Company Number: US200610002721

PATIENT
  Age: 74 Year
  Sex: Female
  Weight: 58.5 kg

DRUGS (2)
  1. EVISTA [Suspect]
     Indication: OSTEOPOROSIS
     Dosage: 60 MG, ORAL
     Route: 048
     Dates: start: 20040101, end: 20060626
  2. ACTONEL /USA/ (RISEDRONATE SODIUM) [Concomitant]

REACTIONS (3)
  - BONE DENSITY DECREASED [None]
  - PULMONARY EMBOLISM [None]
  - THROMBOSIS [None]
